FAERS Safety Report 6912678-9 (Version None)
Quarter: 2010Q3

REPORT INFORMATION
  Report Type: 
  Country: None (occurrence: None)
  Receive Date: 20100806
  Receipt Date: 20081001
  Transmission Date: 20110219
  Serious: Yes (Other)
  Sender: FDA-Public Use
  Company Number: US-PFIZER INC-2008083865

PATIENT
  Age: 26 Year
  Sex: Female

DRUGS (5)
  1. DILANTIN [Suspect]
     Indication: EPILEPSY
  2. DEPAKOTE [Suspect]
     Indication: EPILEPSY
  3. LAMICTAL [Suspect]
     Indication: EPILEPSY
  4. FOLIC ACID [Concomitant]
  5. ORAL CONTRACEPTIVE NOS [Concomitant]

REACTIONS (1)
  - CONVULSION [None]
